FAERS Safety Report 5873277-3 (Version None)
Quarter: 2008Q3

REPORT INFORMATION
  Report Type: 
  Country: None (occurrence: None)
  Receive Date: 20080904
  Receipt Date: 20080813
  Transmission Date: 20090109
  Serious: Yes (Other)
  Sender: FDA-Public Use
  Company Number: ENTC2008-0242

PATIENT
  Age: 64 Year
  Sex: Male

DRUGS (3)
  1. STALEVO 100 [Suspect]
     Indication: PARKINSON'S DISEASE
     Dosage: 1 TABLET (100/25/200MG) ORAL
     Route: 048
     Dates: end: 20080804
  2. CAPTOPRIL [Concomitant]
  3. AMANTADINE HCL [Concomitant]

REACTIONS (5)
  - CONDITION AGGRAVATED [None]
  - HALLUCINATION [None]
  - MALAISE [None]
  - PARKINSONISM [None]
  - SOMNOLENCE [None]
